FAERS Safety Report 6404925-7 (Version None)
Quarter: 2009Q4

REPORT INFORMATION
  Report Type: 
  Country: None (occurrence: None)
  Receive Date: 20091013
  Receipt Date: 20090928
  Transmission Date: 20100525
  Serious: Yes (Other)
  Sender: FDA-Public Use
  Company Number: 001910

PATIENT
  Sex: Female

DRUGS (3)
  1. LACOSAMIDE [Suspect]
     Dosage: (50 MG BID), (100 MG BID), (200 MG BID), (GRADUALLY REDUCED OVER A PERIOD OF 4 WEEKS)
  2. OXCARBAZEPINE [Concomitant]
  3. PHENOBARBITAL [Concomitant]

REACTIONS (2)
  - CONVULSION [None]
  - NO THERAPEUTIC RESPONSE [None]
